FAERS Safety Report 8114021-9 (Version None)
Quarter: 2012Q1

REPORT INFORMATION
  Report Type: 
  Country: None (occurrence: None)
  Receive Date: 20120203
  Receipt Date: 20120201
  Transmission Date: 20120608
  Serious: No
  Sender: FDA-Public Use
  Company Number: US-PFIZER INC-2012028159

PATIENT
  Sex: Female
  Weight: 62.132 kg

DRUGS (2)
  1. LYRICA [Suspect]
     Indication: HERPES ZOSTER
     Dosage: 75 MG, 2X/DAY
     Route: 048
     Dates: start: 20120109
  2. MAGNESIUM [Concomitant]
     Dosage: UNK, AS NEEDED

REACTIONS (4)
  - ABDOMINAL DISTENSION [None]
  - DRUG EFFECT DECREASED [None]
  - PAIN [None]
  - IMPAIRED HEALING [None]
